FAERS Safety Report 25165390 (Version 1)
Quarter: 2025Q2

REPORT INFORMATION
  Report Type: Spontaneous
  Country: CA (occurrence: CA)
  Receive Date: 20250407
  Receipt Date: 20250407
  Transmission Date: 20250716
  Serious: Yes (Hospitalization)
  Sender: TEVA
  Company Number: CA-TEVA-VS-3318683

PATIENT
  Sex: Female

DRUGS (2)
  1. GABAPENTIN [Suspect]
     Active Substance: GABAPENTIN
     Indication: Product used for unknown indication
     Route: 065
  2. OBETICHOLIC ACID [Suspect]
     Active Substance: OBETICHOLIC ACID
     Indication: Primary biliary cholangitis
     Route: 048

REACTIONS (4)
  - Pain [Recovered/Resolved]
  - Gamma-glutamyltransferase abnormal [Recovered/Resolved]
  - Blood alkaline phosphatase abnormal [Recovered/Resolved]
  - Withdrawal syndrome [Recovered/Resolved]
